FAERS Safety Report 4640329-5 (Version None)
Quarter: 2005Q2

REPORT INFORMATION
  Report Type: 
  Country: None (occurrence: None)
  Receive Date: 20050419
  Receipt Date: 20050412
  Transmission Date: 20051028
  Serious: Yes (Death, Hospitalization)
  Sender: FDA-Public Use
  Company Number: 2005UW05691

PATIENT
  Age: 87 Year
  Sex: Male

DRUGS (4)
  1. SEROQUEL [Suspect]
     Indication: AGGRESSION
     Dosage: 125 MG DAILY PO
     Route: 048
  2. SEROQUEL [Suspect]
     Indication: AGITATION
     Dosage: 125 MG DAILY PO
     Route: 048
  3. HALDOL [Concomitant]
  4. ATIVAN [Concomitant]

REACTIONS (2)
  - CARDIAC DISORDER [None]
  - DRUG INEFFECTIVE [None]
